FAERS Safety Report 5217232-5 (Version None)
Quarter: 2007Q1

REPORT INFORMATION
  Report Type: 
  Country: None (occurrence: None)
  Receive Date: 20070122
  Receipt Date: 20070122
  Transmission Date: 20070707
  Serious: Yes (Hospitalization)
  Sender: FDA-Public Use
  Company Number: None

PATIENT
  Age: 58 Year
  Sex: Male
  Weight: 75.2971 kg

DRUGS (16)
  1. MORPHINE SULFATE [Suspect]
     Indication: GOUT
     Dates: start: 20061103
  2. ACETAM 500/HYDROCODONE 5 [Concomitant]
  3. ASPIRIN [Concomitant]
  4. CARVEDILOL [Concomitant]
  5. FUROSEMIDE [Concomitant]
  6. GABAPENTIN [Concomitant]
  7. SIMVASTATIN [Concomitant]
  8. CEPHALEXIN [Concomitant]
  9. HYDROCHLOROTHIAZIDE [Concomitant]
  10. HYDRALAZINE HCL [Concomitant]
  11. SERTRALINE [Concomitant]
  12. OMEPRAZOLE [Concomitant]
  13. WARFARIN SODIUM [Concomitant]
  14. NICOTINE [Concomitant]
  15. TRAZODONE HCL [Concomitant]
  16. TEMAZEPIN [Suspect]
     Dosage: 15MG DAILY BEDTIME

REACTIONS (4)
  - ARTHRALGIA [None]
  - HYPOXIA [None]
  - LETHARGY [None]
  - RENAL FAILURE ACUTE [None]
